FAERS Safety Report 7606621-7 (Version None)
Quarter: 2011Q3

REPORT INFORMATION
  Report Type: 
  Country: None (occurrence: None)
  Receive Date: 20110713
  Receipt Date: 20110711
  Transmission Date: 20111222
  Serious: Yes (Death)
  Sender: FDA-Public Use
  Company Number: PHHY2011AU56196

PATIENT
  Age: 22 Year

DRUGS (3)
  1. METHADONE HCL [Suspect]
     Dosage: 2 DF, UNK
  2. QUETIAPINE [Suspect]
     Dosage: UNK
  3. ALPRAZOLAM [Suspect]
     Dosage: 37 DF, UNK

REACTIONS (4)
  - SOMNOLENCE [None]
  - ACCIDENTAL POISONING [None]
  - RESPIRATORY DEPRESSION [None]
  - TOXICITY TO VARIOUS AGENTS [None]
